FAERS Safety Report 7633975-8 (Version None)
Quarter: 2011Q3

REPORT INFORMATION
  Report Type: 
  Country: None (occurrence: None)
  Receive Date: 20110725
  Receipt Date: 20110713
  Transmission Date: 20111222
  Serious: Yes (Other)
  Sender: FDA-Public Use
  Company Number: US-PFIZER INC-2011159049

PATIENT
  Sex: Female
  Weight: 83.9 kg

DRUGS (6)
  1. PRISTIQ [Suspect]
     Dosage: 100 MG, 1X/DAY
     Route: 048
     Dates: end: 20110613
  2. FOLIC ACID [Concomitant]
     Dosage: 1 MG
  3. LORTAB [Concomitant]
     Indication: NECK PAIN
  4. CALCIUM [Concomitant]
     Dosage: UNK
  5. PRISTIQ [Suspect]
     Indication: DEPRESSION
     Dosage: 50 MG, 1X/DAY
     Route: 048
     Dates: start: 20100601
  6. LORTAB [Concomitant]
     Indication: BACK PAIN
     Dosage: 100/650 MG, UNK

REACTIONS (11)
  - GAIT DISTURBANCE [None]
  - HAEMORRHAGE [None]
  - HAEMATOMA [None]
  - LABORATORY TEST ABNORMAL [None]
  - HYPERTENSION [None]
  - NEUROPATHY PERIPHERAL [None]
  - TREMOR [None]
  - HEADACHE [None]
  - SERUM SEROTONIN DECREASED [None]
  - MONOPLEGIA [None]
  - FEELING ABNORMAL [None]
